FAERS Safety Report 9721432 (Version 1)
Quarter: 2013Q4

REPORT INFORMATION
  Report Type: Spontaneous
  Country: SE (occurrence: SE)
  Receive Date: 20131129
  Receipt Date: 20131129
  Transmission Date: 20140711
  Serious: Yes (Hospitalization, Other)
  Sender: FDA-Public Use
  Company Number: SE-ASTRAZENECA-2013SE87088

PATIENT
  Age: 79 Year
  Sex: Female
  Weight: 48 kg

DRUGS (5)
  1. PLENDIL [Suspect]
     Indication: HYPERTENSION
     Route: 048
     Dates: start: 2003
  2. PLENDIL [Suspect]
     Indication: HYPERTENSION
     Route: 048
     Dates: end: 201310
  3. PREDNISOLON ALTERNOVA [Concomitant]
     Route: 048
  4. LOSARTAN ACTAVIS [Concomitant]
  5. CALCIUM/VITAMIN D3 [Concomitant]
     Dosage: 500 MG/400 IE TWO TIMES A DAY

REACTIONS (1)
  - Breast cancer female [Unknown]
